FAERS Safety Report 5166548-X (Version None)
Quarter: 2006Q4

REPORT INFORMATION
  Report Type: 
  Country: None (occurrence: None)
  Receive Date: 20061130
  Receipt Date: 20061130
  Transmission Date: 20070319
  Serious: Yes (Hospitalization)
  Sender: FDA-Public Use
  Company Number: None

PATIENT
  Age: 81 Year
  Sex: Male

DRUGS (6)
  1. INTEGRILIN [Suspect]
     Indication: MYOCARDIAL INFARCTION
  2. HEPARIN [Suspect]
     Indication: MYOCARDIAL INFARCTION
  3. ASPIRIN [Concomitant]
  4. LIPITOR [Concomitant]
  5. ACEON [Concomitant]
  6. VICODIN [Concomitant]

REACTIONS (2)
  - ARTERIOGRAM CORONARY [None]
  - GASTROINTESTINAL HAEMORRHAGE [None]
